FAERS Safety Report 4377251-8 (Version None)
Quarter: 2004Q2

REPORT INFORMATION
  Report Type: 
  Country: None (occurrence: None)
  Receive Date: 20040609
  Receipt Date: 20040319
  Transmission Date: 20050107
  Serious: No
  Sender: FDA-Public Use
  Company Number: 2004205635US

PATIENT
  Age: 73 Year
  Sex: Female

DRUGS (9)
  1. BEXTRA [Suspect]
     Indication: ARTHRITIS
     Dosage: 10 MG, QD
     Dates: start: 20040201
  2. PRAZOSIN GITS [Concomitant]
  3. CARTIA [Concomitant]
  4. INSULIN [Concomitant]
  5. ESTROGEN [Concomitant]
  6. CAPTOPRIL [Concomitant]
  7. SYNTHROID [Concomitant]
  8. STOOL SOFTENER )DOCUSATE SODIUM) [Concomitant]
  9. ASPIRIN [Concomitant]

REACTIONS (2)
  - ONYCHORRHEXIS [None]
  - TOOTHACHE [None]
